FAERS Safety Report 5303279-7 (Version None)
Quarter: 2007Q2

REPORT INFORMATION
  Report Type: 
  Country: None (occurrence: None)
  Receive Date: 20070420
  Receipt Date: 20070418
  Transmission Date: 20071010
  Serious: Yes (Disabling)
  Sender: FDA-Public Use
  Company Number: US-GLAXOSMITHKLINE-A0647820A

PATIENT
  Age: 77 Year
  Sex: Female

DRUGS (16)
  1. REQUIP [Suspect]
     Indication: RESTLESS LEGS SYNDROME
     Dosage: 2MG AT NIGHT
     Route: 048
     Dates: start: 20070201
  2. VERPAMIL [Concomitant]
  3. HYDROCHLOROTHIAZIDE [Concomitant]
  4. ACTOS [Concomitant]
  5. NEXIUM [Concomitant]
  6. CRESTOR [Concomitant]
  7. COREG [Concomitant]
  8. LEXAPRO [Concomitant]
  9. DICYCLOMINE [Concomitant]
  10. METFORMIN HCL [Concomitant]
  11. LACTULOSE [Concomitant]
  12. ZONISAMIDE [Concomitant]
  13. DSS [Concomitant]
  14. FLEXERIL [Concomitant]
  15. PREDNISONE TAB [Concomitant]
  16. ASPIRIN [Concomitant]

REACTIONS (1)
  - RESTLESS LEGS SYNDROME [None]
